FAERS Safety Report 7025702-2 (Version None)
Quarter: 2010Q4

REPORT INFORMATION
  Report Type: 
  Country: None (occurrence: None)
  Receive Date: 20101004
  Receipt Date: 20100924
  Transmission Date: 20110411
  Serious: Yes (Hospitalization)
  Sender: FDA-Public Use
  Company Number: US-BIOGENIDEC-2010BI028799

PATIENT
  Age: 47 Year
  Sex: Female

DRUGS (2)
  1. TYSABRI [Suspect]
     Indication: MULTIPLE SCLEROSIS
     Route: 042
     Dates: start: 20090917, end: 20100601
  2. AVONEX [Concomitant]
     Route: 030
     Dates: start: 20070606

REACTIONS (3)
  - FATIGUE [None]
  - MENTAL STATUS CHANGES [None]
  - OVERDOSE [None]
